FAERS Safety Report 20620938 (Version 1)
Quarter: 2022Q1

REPORT INFORMATION
  Report Type: Spontaneous
  Country: US (occurrence: None)
  Receive Date: 20220321
  Receipt Date: 20220321
  Transmission Date: 20220423
  Serious: No
  Sender: FDA-Public Use
  Company Number: None

PATIENT
  Age: 30 Year
  Sex: Female

DRUGS (1)
  1. COSENTYX [Suspect]
     Active Substance: SECUKINUMAB
     Indication: Psoriasis
     Dosage: 300MG EVERY 4 WEEKS SUBCUTANEOUS?
     Route: 058
     Dates: start: 202011

REACTIONS (3)
  - Device malfunction [None]
  - Device failure [None]
  - Drug dose omission by device [None]

NARRATIVE: CASE EVENT DATE: 20220301
